FAERS Safety Report 5738936-1 (Version None)
Quarter: 2008Q2

REPORT INFORMATION
  Report Type: 
  Country: None (occurrence: None)
  Receive Date: 20080515
  Receipt Date: 20080506
  Transmission Date: 20081010
  Serious: Yes (Death, Other)
  Sender: FDA-Public Use
  Company Number: US-JNJFOC-20080100939

PATIENT
  Sex: Male
  Weight: 81.65 kg

DRUGS (6)
  1. DOXIL [Suspect]
     Dosage: CYCLE 1, DAYS 1,4,8 + 11
     Route: 042
  2. DOXIL [Suspect]
     Indication: MULTIPLE MYELOMA
     Dosage: CYCLE 2, DAYS 1,4,8 + 11
     Route: 042
  3. VELCADE [Suspect]
     Dosage: CYCLE 1
     Route: 065
  4. VELCADE [Suspect]
     Indication: MULTIPLE MYELOMA
     Dosage: CYCLE 2
     Route: 065
  5. DEXAMETHASONE [Suspect]
     Dosage: CYCLE 1
     Route: 065
  6. DEXAMETHASONE [Suspect]
     Indication: MULTIPLE MYELOMA
     Dosage: CYCLE 2
     Route: 065

REACTIONS (3)
  - DYSKINESIA [None]
  - GRAND MAL CONVULSION [None]
  - PULMONARY EMBOLISM [None]
